FAERS Safety Report 6075439-1 (Version None)
Quarter: 2009Q1

REPORT INFORMATION
  Report Type: 
  Country: None (occurrence: None)
  Receive Date: 20090212
  Receipt Date: 20090206
  Transmission Date: 20090719
  Serious: Yes (Other)
  Sender: FDA-Public Use
  Company Number: A0729295A

PATIENT
  Age: 59 Year
  Sex: Male
  Weight: 97.7 kg

DRUGS (9)
  1. AVANDIA [Suspect]
     Dosage: 4MG TWICE PER DAY
     Route: 048
     Dates: start: 20060301, end: 20070201
  2. AVANDAMET [Suspect]
     Route: 048
     Dates: start: 20060306
  3. STARLIX [Concomitant]
  4. TRICOR [Concomitant]
  5. METFORMIN HCL [Concomitant]
  6. AMARYL [Concomitant]
  7. FOSAMAX [Concomitant]
  8. ETODOLAC [Concomitant]
     Dates: end: 20070201
  9. ZOCOR [Concomitant]
     Dates: end: 20070201

REACTIONS (1)
  - MYOCARDIAL INFARCTION [None]
